FAERS Safety Report 9380968 (Version 2)
Quarter: 2013Q3

REPORT INFORMATION
  Report Type: Spontaneous
  Country: CA (occurrence: CA)
  Receive Date: 20130703
  Receipt Date: 20130806
  Transmission Date: 20140515
  Serious: Yes (Hospitalization)
  Sender: FDA-Public Use
  Company Number: CA-ROCHE-1244276

PATIENT
  Age: 76 Year
  Sex: Male

DRUGS (7)
  1. XOLAIR [Suspect]
     Indication: ASTHMA
     Route: 058
     Dates: start: 20130626
  2. DEXLANSOPRAZOLE [Concomitant]
  3. OMNARIS [Concomitant]
  4. VENTOLIN HFA [Concomitant]
  5. ZENHALE [Concomitant]
  6. SPIRIVA [Concomitant]
  7. ADVAIR DISKUS [Concomitant]

REACTIONS (4)
  - Lung infection [Unknown]
  - Musculoskeletal stiffness [Unknown]
  - Asthma [Unknown]
  - Pyrexia [Unknown]
